FAERS Safety Report 7393415-3 (Version None)
Quarter: 2011Q2

REPORT INFORMATION
  Report Type: 
  Country: None (occurrence: None)
  Receive Date: 20110405
  Receipt Date: 20110322
  Transmission Date: 20111010
  Serious: Yes (Other)
  Sender: FDA-Public Use
  Company Number: US-RANBAXY-2011RR-43431

PATIENT
  Sex: Male

DRUGS (6)
  1. LEVAQUIN [Suspect]
     Indication: PRODUCT USED FOR UNKNOWN INDICATION
     Dosage: 500 MG, QD
     Route: 065
  2. AVELOX [Suspect]
     Indication: UPPER RESPIRATORY TRACT INFECTION
     Route: 065
  3. CIPROFLOXACIN [Suspect]
     Indication: UPPER RESPIRATORY TRACT INFECTION
     Route: 065
  4. CIPROFLOXACIN [Suspect]
     Indication: BRONCHITIS
  5. AVELOX [Suspect]
     Indication: BRONCHITIS
  6. LEVAQUIN [Suspect]
     Indication: UPPER RESPIRATORY TRACT INFECTION
     Dosage: UNK
     Route: 048
     Dates: start: 20061101

REACTIONS (5)
  - ROTATOR CUFF SYNDROME [None]
  - TENDON RUPTURE [None]
  - PLANTAR FASCIITIS [None]
  - MUSCLE RUPTURE [None]
  - JOINT INJURY [None]
